FAERS Safety Report 5026143-X (Version None)
Quarter: 2006Q2

REPORT INFORMATION
  Report Type: 
  Country: None (occurrence: None)
  Receive Date: 20060608
  Receipt Date: 20020320
  Transmission Date: 20061013
  Serious: No
  Sender: FDA-Public Use
  Company Number: 2002-03-1415

PATIENT
  Sex: Male
  Weight: 74 kg

DRUGS (6)
  1. ETHYOL [Suspect]
     Indication: ADVERSE DRUG REACTION
     Dosage: INTRAVENOUS
     Route: 042
     Dates: start: 20010517, end: 20010705
  2. RADIATION THERAPY [Suspect]
     Indication: OROPHARYNGEAL CANCER STAGE UNSPECIFIED
     Dosage: OTHER
  3. RHINOCORT [Concomitant]
  4. BAYCOL [Concomitant]
  5. ALLEGRA [Concomitant]
  6. MAXZIDE [Concomitant]

REACTIONS (5)
  - APHAGIA [None]
  - CONDITION AGGRAVATED [None]
  - PAIN [None]
  - PHARYNGOLARYNGEAL PAIN [None]
  - WEIGHT DECREASED [None]
